FAERS Safety Report 6248709-1 (Version None)
Quarter: 2009Q2

REPORT INFORMATION
  Report Type: 
  Country: None (occurrence: None)
  Receive Date: 20090625
  Receipt Date: 20090625
  Transmission Date: 20091009
  Serious: Yes (Hospitalization)
  Sender: FDA-Public Use
  Company Number: None

PATIENT
  Age: 83 Year
  Sex: Male

DRUGS (3)
  1. DIGOXIN [Suspect]
     Indication: ATRIAL FIBRILLATION
     Dosage: 1 TAB EVERY DAY PO
     Route: 048
     Dates: start: 20081219, end: 20090502
  2. DIGOXIN [Suspect]
     Indication: CARDIAC FAILURE CONGESTIVE
     Dosage: 1 TAB EVERY DAY PO
     Route: 048
     Dates: start: 20081219, end: 20090502
  3. METOPROLOL [Suspect]
     Indication: HYPERTENSION
     Dosage: 1 TAB EVERY DAY PO
     Route: 048
     Dates: start: 20080519

REACTIONS (3)
  - BRADYCARDIA [None]
  - DIZZINESS [None]
  - THERAPEUTIC AGENT TOXICITY [None]
